FAERS Safety Report 9019839 (Version 2)
Quarter: 2013Q2

REPORT INFORMATION
  Report Type: Report from Study
  Country: BR (occurrence: BR)
  Receive Date: 20130118
  Receipt Date: 20130513
  Transmission Date: 20140414
  Serious: Yes (Hospitalization, Other)
  Sender: FDA-Public Use
  Company Number: BR-ABBOTT-13P-020-1033995-00

PATIENT
  Sex: Female
  Weight: 74 kg

DRUGS (6)
  1. HUMIRA [Suspect]
     Indication: RHEUMATOID ARTHRITIS
     Route: 058
     Dates: start: 201207
  2. ARAVA [Suspect]
     Indication: BONE DISORDER
     Route: 048
  3. UNSPECIFIED DRUG [Concomitant]
     Indication: GASTRIC DISORDER
     Route: 048
     Dates: start: 2010
  4. UNSPECIFIED DRUG [Concomitant]
     Indication: BONE DISORDER
     Dosage: 8 TABLETS PER WEEK
     Route: 048
     Dates: start: 2010
  5. UNSPECIFIED DRUG [Concomitant]
     Indication: BONE DISORDER
     Route: 048
     Dates: start: 2010
  6. UNSPECIFIED DRUG [Concomitant]
     Indication: BLOOD PRESSURE ABNORMAL
     Dosage: 3 TABLETS DAILY
     Route: 048
     Dates: start: 1993

REACTIONS (9)
  - Thrombosis [Recovered/Resolved]
  - Feeling hot [Recovered/Resolved]
  - Local swelling [Recovered/Resolved]
  - Sensation of heaviness [Recovered/Resolved]
  - Dysstasia [Recovered/Resolved]
  - Pain in extremity [Unknown]
  - Hypoaesthesia [Unknown]
  - Burning sensation [Unknown]
  - Feeling hot [Unknown]
